FAERS Safety Report 17564068 (Version 2)
Quarter: 2020Q1

REPORT INFORMATION
  Report Type: Spontaneous
  Country: US (occurrence: US)
  Receive Date: 20200320
  Receipt Date: 20200328
  Transmission Date: 20200409
  Serious: No
  Sender: FDA-Public Use
  Company Number: US-009507513-2003USA003852

PATIENT
  Age: 69 Year
  Sex: Male

DRUGS (2)
  1. DAPTOMYCIN. [Concomitant]
     Active Substance: DAPTOMYCIN
     Indication: OSTEOMYELITIS BACTERIAL
     Dosage: UNK
  2. ZERBAXA [Suspect]
     Active Substance: CEFTOLOZANE SULFATE\TAZOBACTAM SODIUM
     Indication: OSTEOMYELITIS BACTERIAL
     Dosage: 3 GRAM, Q8H, INITIAL DOSE OVER 1 HOUR FOLLOWED BY 4 HOURS INFUSIONS FOR SUBSEQUENT DOSAGES

REACTIONS (1)
  - Off label use [Unknown]
